FAERS Safety Report 8333770-0 (Version None)
Quarter: 2012Q2

REPORT INFORMATION
  Report Type: 
  Country: None (occurrence: None)
  Receive Date: 20120503
  Receipt Date: 20120422
  Transmission Date: 20120825
  Serious: Yes (Hospitalization)
  Sender: FDA-Public Use
  Company Number: IL-ELI_LILLY_AND_COMPANY-IL201205000321

PATIENT
  Sex: Female
  Weight: 107 kg

DRUGS (9)
  1. FORTEO [Suspect]
     Indication: OSTEOPOROSIS
     Dosage: 20 UG, QD
     Route: 058
     Dates: start: 20100708
  2. VITAMIN E                            /001105/ [Concomitant]
  3. ENALAPRIL MALEATE [Concomitant]
     Indication: HYPERTENSION
  4. CRESTOR [Concomitant]
     Indication: HYPERLIPIDAEMIA
  5. PRILOSEC [Concomitant]
  6. FOLIC ACID [Concomitant]
  7. VITAMIN C [Concomitant]
  8. OMEGA 3                            /06852001/ [Concomitant]
  9. CALCIUM [Concomitant]

REACTIONS (3)
  - DIAPHRAGMATIC HERNIA [None]
  - ENDOSCOPY UPPER GASTROINTESTINAL TRACT [None]
  - COLONOSCOPY [None]
